FAERS Safety Report 22329396 (Version 2)
Quarter: 2023Q2

REPORT INFORMATION
  Report Type: Other
  Country: CN (occurrence: None)
  Receive Date: 20230517
  Receipt Date: 20230628
  Transmission Date: 20230721
  Serious: Yes (Other)
  Sender: FDA-Public Use
  Company Number: CN-ROCHE-2129806

PATIENT
  Age: 48 Year
  Sex: Male
  Weight: 77 kg

DRUGS (1)
  1. AVASTIN [Suspect]
     Active Substance: BEVACIZUMAB
     Indication: Non-small cell lung cancer
     Dosage: FORM OF ADMIN : 100MG
     Route: 041
     Dates: start: 20161031

REACTIONS (11)
  - Plasma cell myeloma [Unknown]
  - Headache [Unknown]
  - Nasopharyngitis [Unknown]
  - Hypertension [Unknown]
  - Pulmonary mass [Not Recovered/Not Resolved]
  - Hepatic cyst [Not Recovered/Not Resolved]
  - Fall [Unknown]
  - Ligament sprain [Unknown]
  - Back pain [Unknown]
  - Resorption bone increased [Unknown]
  - Pyrexia [Unknown]

NARRATIVE: CASE EVENT DATE: 20221101
